FAERS Safety Report 23877797 (Version 1)
Quarter: 2024Q2

REPORT INFORMATION
  Report Type: Other
  Country: US (occurrence: None)
  Receive Date: 20240521
  Receipt Date: 20240521
  Transmission Date: 20240715
  Serious: Yes (Other)
  Sender: FDA-Public Use
  Company Number: US-ROCHE-3565011

PATIENT
  Age: 73 Year
  Sex: Male

DRUGS (7)
  1. RITUXIMAB [Suspect]
     Active Substance: RITUXIMAB
     Indication: Chronic lymphocytic leukaemia
     Route: 065
  2. VENCLEXTA [Suspect]
     Active Substance: VENETOCLAX
     Indication: Chronic lymphocytic leukaemia
     Route: 048
     Dates: start: 202402, end: 202402
  3. VENCLEXTA [Suspect]
     Active Substance: VENETOCLAX
     Dosage: 2 DAYS
     Route: 048
     Dates: start: 202402, end: 202402
  4. VENCLEXTA [Suspect]
     Active Substance: VENETOCLAX
     Route: 048
     Dates: start: 202402, end: 202402
  5. VENCLEXTA [Suspect]
     Active Substance: VENETOCLAX
     Route: 048
     Dates: start: 202402
  6. VENCLEXTA [Suspect]
     Active Substance: VENETOCLAX
     Dosage: 4 DAYS
     Route: 048
     Dates: start: 202403
  7. VENCLEXTA [Suspect]
     Active Substance: VENETOCLAX
     Dosage: 4 DAYS
     Route: 048
     Dates: start: 202403

REACTIONS (8)
  - Pulmonary oedema [Recovering/Resolving]
  - Dyspnoea [Recovering/Resolving]
  - Scrotal swelling [Unknown]
  - Oedema [Unknown]
  - Weight decreased [Unknown]
  - Fatigue [Unknown]
  - Atrial enlargement [Unknown]
  - Scrotal oedema [Unknown]

NARRATIVE: CASE EVENT DATE: 20240401
